FAERS Safety Report 5871052-7 (Version None)
Quarter: 2008Q3

REPORT INFORMATION
  Report Type: 
  Country: None (occurrence: None)
  Receive Date: 20080904
  Receipt Date: 20080820
  Transmission Date: 20090109
  Serious: Yes (Other)
  Sender: FDA-Public Use
  Company Number: CA-AMGEN-US304295

PATIENT
  Age: 26 Year
  Sex: Male

DRUGS (6)
  1. ENBREL [Suspect]
     Indication: ANKYLOSING SPONDYLITIS
     Route: 058
     Dates: start: 20020701, end: 20031201
  2. DICLOFENAC [Concomitant]
     Indication: ANKYLOSING SPONDYLITIS
     Route: 065
     Dates: end: 20020101
  3. DICLOFENAC [Concomitant]
  4. ACETAMINOPHEN W/ CODEINE [Concomitant]
     Indication: ANKYLOSING SPONDYLITIS
     Dosage: REQUIREMENT INCREASED; DOSE AND FREQUENCY NOT SPECIFIED
     Route: 065
  5. ACETAMINOPHEN W/ CODEINE [Concomitant]
     Dates: start: 20020101, end: 20020101
  6. ACETAMINOPHEN W/ CODEINE [Concomitant]
     Dosage: DOSE NOT SPECIFIED
     Dates: start: 20031201

REACTIONS (1)
  - CROHN'S DISEASE [None]
